FAERS Safety Report 10845659 (Version 2)
Quarter: 2015Q2

REPORT INFORMATION
  Report Type: Spontaneous
  Country: DE (occurrence: DE)
  Receive Date: 20150220
  Receipt Date: 20150511
  Transmission Date: 20150821
  Serious: Yes (Hospitalization, Other)
  Sender: FDA-Public Use
  Company Number: DE-PFIZER INC-2015062827

PATIENT
  Age: 64 Year
  Sex: Male

DRUGS (10)
  1. LYRICA [Suspect]
     Active Substance: PREGABALIN
     Dosage: 200 MG, UNK
     Dates: end: 20150206
  2. ELONTRIL [Suspect]
     Active Substance: BUPROPION HYDROCHLORIDE
     Dosage: 300 MG, UNK
     Dates: end: 20150206
  3. METFORMIN [Concomitant]
     Active Substance: METFORMIN HYDROCHLORIDE
     Dosage: 850 MG, UNK
     Dates: end: 20150206
  4. SIMVASTATIN 80 1A PHARMA [Concomitant]
     Dosage: UNK
     Dates: end: 20150206
  5. CYMBALTA [Suspect]
     Active Substance: DULOXETINE HYDROCHLORIDE
     Dosage: 60 MG, UNK
     Dates: end: 20150206
  6. METOPROLOL SUCCINATE 1A 47.5 RET [Concomitant]
     Dosage: UNK
     Dates: end: 20150206
  7. MIRTAZAPINE. [Suspect]
     Active Substance: MIRTAZAPINE
     Dosage: 15 MG, UNK
     Dates: end: 20150206
  8. ALLOPURINOL AL [Concomitant]
     Dosage: 100 100
     Dates: end: 20150206
  9. ASS 100 - 1A PHARMA [Concomitant]
     Dosage: UNK
     Dates: end: 20150206
  10. CARMEN 20 [Concomitant]
     Dosage: UNK
     Dates: end: 20150206

REACTIONS (19)
  - Staphylococcal infection [Unknown]
  - Nausea [Unknown]
  - Multi-organ failure [Unknown]
  - Renal failure [Unknown]
  - Agitation [Unknown]
  - Muscle spasms [Unknown]
  - Anxiety [Unknown]
  - Dyspnoea [Unknown]
  - Sleep disorder [Unknown]
  - Headache [Unknown]
  - Pneumonia [Unknown]
  - Coma [Unknown]
  - Blood pressure increased [Unknown]
  - Seizure [Unknown]
  - Hallucination [Unknown]
  - Intervertebral discitis [Unknown]
  - Muscle tightness [Unknown]
  - Confusional state [Unknown]
  - Nervousness [Unknown]

NARRATIVE: CASE EVENT DATE: 201502
